FAERS Safety Report 19229163 (Version 2)
Quarter: 2021Q2

REPORT INFORMATION
  Report Type: Report from Study
  Country: KR (occurrence: KR)
  Receive Date: 20210506
  Receipt Date: 20210521
  Transmission Date: 20210717
  Serious: Yes (Hospitalization)
  Sender: FDA-Public Use
  Company Number: KR-MACROGENICS-2021000106

PATIENT
  Age: 66 Year
  Sex: Male
  Weight: 52.5 kg

DRUGS (21)
  1. MARGETUXIMAB. [Suspect]
     Active Substance: MARGETUXIMAB
     Dosage: 15 MILLIGRAM/KILOGRAM, Q3WEEKS
     Route: 042
     Dates: start: 20210422, end: 20210422
  2. FERROUS SULFATE. [Concomitant]
     Active Substance: FERROUS SULFATE
     Indication: ANAEMIA
     Dosage: 256 MILLIGRAM, BID
     Route: 048
     Dates: start: 20210422
  3. TAPENTADOL HYDROCHLORIDE [Concomitant]
     Active Substance: TAPENTADOL HYDROCHLORIDE
     Indication: PAIN
     Dosage: 200 MILLIGRAM, BID
     Route: 048
     Dates: start: 20200914
  4. GASTER [Concomitant]
     Active Substance: FAMOTIDINE
     Indication: PREMEDICATION
     Dosage: 20 MILLIGRAM, Q3WEEKS
     Route: 042
     Dates: start: 20210401, end: 20210401
  5. GASTER [Concomitant]
     Active Substance: FAMOTIDINE
     Dosage: 20 MILLIGRAM, Q3WEEKS
     Route: 042
     Dates: start: 20210422, end: 20210422
  6. RABEPRAZOLE [Concomitant]
     Active Substance: RABEPRAZOLE
     Indication: DYSPEPSIA
     Dosage: 20 MILLIGRAM, QD
     Route: 048
     Dates: start: 20200506
  7. RETIFANLIMAB. [Suspect]
     Active Substance: RETIFANLIMAB
     Dosage: 375 MILLIGRAM, Q3WEEKS
     Route: 042
     Dates: start: 20210422, end: 20210422
  8. ASPIRIN [ACETYLSALICYLIC ACID] [Concomitant]
     Active Substance: ASPIRIN
     Indication: ACUTE MYOCARDIAL INFARCTION
     Dosage: 100 MILLIGRAM, QD
     Route: 048
     Dates: start: 20200506
  9. ROSUZET [Concomitant]
     Active Substance: EZETIMIBE\ROSUVASTATIN
     Indication: HYPERTENSION
     Dosage: 1 TABLET, QD
     Route: 048
     Dates: start: 20200819
  10. TARGIN [Concomitant]
     Active Substance: NALOXONE HYDROCHLORIDE\OXYCODONE HYDROCHLORIDE
     Indication: NEUROPATHY PERIPHERAL
     Dosage: 10 MILLIGRAM, BID
     Route: 048
     Dates: start: 20210218
  11. ALPRAZOLAM. [Concomitant]
     Active Substance: ALPRAZOLAM
     Indication: INSOMNIA
     Dosage: 0.75 MILLIGRAM, TID
     Route: 048
     Dates: start: 20201222
  12. RETIFANLIMAB. [Suspect]
     Active Substance: RETIFANLIMAB
     Indication: GASTRIC CANCER
     Dosage: 375 MILLIGRAM, Q3WEEKS
     Route: 042
     Dates: start: 20200925, end: 20200925
  13. ACETAMINOPHEN. [Concomitant]
     Active Substance: ACETAMINOPHEN
     Indication: PREMEDICATION
     Dosage: 650 MILLIGRAM, Q3WEEKS
     Route: 048
     Dates: start: 20210401, end: 20210401
  14. PENIRAMIN [Concomitant]
     Indication: PREMEDICATION
     Dosage: 4 MILLIGRAM, Q3WEEKS
     Route: 042
     Dates: start: 20210401, end: 20210401
  15. BUTYLSCOPOLAMINE [Concomitant]
     Active Substance: BUTYLSCOPOLAMINE
     Indication: ABDOMINAL PAIN
     Dosage: 10 MILLIGRAM, TID
     Route: 048
     Dates: start: 20210422
  16. PENIRAMIN [Concomitant]
     Dosage: 4 MILLIGRAM, Q3WEEKS
     Route: 042
     Dates: start: 20210422, end: 20210422
  17. ACETAMINOPHEN. [Concomitant]
     Active Substance: ACETAMINOPHEN
     Dosage: 650 MILLIGRAM, Q3WEEKS
     Route: 042
     Dates: start: 20210422, end: 20210422
  18. MARGETUXIMAB. [Suspect]
     Active Substance: MARGETUXIMAB
     Indication: GASTRIC CANCER
     Dosage: 15 MILLIGRAM/KILOGRAM, Q3WEEKS
     Route: 042
     Dates: start: 20200925, end: 20200925
  19. GABAPENTIN. [Concomitant]
     Active Substance: GABAPENTIN
     Indication: NEUROPATHY PERIPHERAL
     Dosage: 300 MILLIGRAM, TID
     Route: 048
     Dates: start: 20201015
  20. PREGABALIN. [Concomitant]
     Active Substance: PREGABALIN
     Indication: NEUROPATHY PERIPHERAL
     Dosage: 150 MILLIGRAM, BID
     Route: 048
     Dates: start: 20210111
  21. TRIMEBUTINE [Concomitant]
     Active Substance: TRIMEBUTINE
     Indication: DYSPEPSIA
     Dosage: 300 MILLIGRAM, TID
     Route: 048
     Dates: start: 20200914

REACTIONS (1)
  - Hepatitis [Recovering/Resolving]

NARRATIVE: CASE EVENT DATE: 20210429
